FAERS Safety Report 7299294-7 (Version None)
Quarter: 2011Q1

REPORT INFORMATION
  Report Type: 
  Country: None (occurrence: None)
  Receive Date: 20110217
  Receipt Date: 20110203
  Transmission Date: 20110831
  Serious: Yes (Hospitalization, Other)
  Sender: FDA-Public Use
  Company Number: ES-MYLANLABS-2011S1002569

PATIENT
  Age: 5 Year
  Sex: Female

DRUGS (11)
  1. METHOTREXATE [Suspect]
     Dosage: CONTINUOUS INFUSION OVER 24 HOURS
     Route: 041
  2. CYTARABINE [Concomitant]
     Indication: ACUTE LYMPHOCYTIC LEUKAEMIA
     Dosage: 30MG ON DAYS 1, 8 AND 15
     Route: 037
  3. DAUNORUBICIN [Concomitant]
     Indication: ACUTE LYMPHOCYTIC LEUKAEMIA
     Route: 065
  4. CYCLOPHOSPHAMIDE [Concomitant]
     Indication: ACUTE LYMPHOCYTIC LEUKAEMIA
     Route: 065
  5. MERCAPTOPURINE [Concomitant]
     Indication: ACUTE LYMPHOCYTIC LEUKAEMIA
     Route: 048
  6. HYDROCORTISONE [Concomitant]
     Indication: ACUTE LYMPHOCYTIC LEUKAEMIA
     Dosage: 20MG ON DAYS 1, 8 AND 15
     Route: 037
  7. PREDNISONE TAB [Concomitant]
     Indication: ACUTE LYMPHOCYTIC LEUKAEMIA
     Route: 065
  8. FOLINIC ACID [Concomitant]
     Indication: ACUTE LYMPHOCYTIC LEUKAEMIA
     Dosage: GIVEN 36 HOURS AFTER METHOTREXATE INFUSION
     Route: 065
  9. METHOTREXATE [Suspect]
     Indication: ACUTE LYMPHOCYTIC LEUKAEMIA
     Dosage: 12MG ON DAYS 1, 8 AND 15
     Route: 037
  10. VINCRISTINE [Concomitant]
     Indication: ACUTE LYMPHOCYTIC LEUKAEMIA
     Route: 065
  11. ASPARAGINASE [Concomitant]
     Indication: ACUTE LYMPHOCYTIC LEUKAEMIA
     Route: 065

REACTIONS (1)
  - NEUROTOXICITY [None]
